FAERS Safety Report 12783090 (Version 1)
Quarter: 2016Q3

REPORT INFORMATION
  Report Type: Report from Study
  Country: JP (occurrence: JP)
  Receive Date: 20160927
  Receipt Date: 20160927
  Transmission Date: 20161109
  Serious: Yes (Hospitalization)
  Sender: FDA-Public Use
  Company Number: JP-BEH-2014045977

PATIENT
  Age: 15 Year
  Sex: Female

DRUGS (8)
  1. STIMATE [Suspect]
     Active Substance: DESMOPRESSIN ACETATE
     Indication: DIABETES INSIPIDUS
     Dosage: IN TWO DIVIDED DOSES
     Route: 045
  2. SOMATROPIN [Concomitant]
     Active Substance: SOMATROPIN
     Dates: start: 20130812
  3. CORTIL [Concomitant]
     Dates: start: 20130812
  4. HYSRON [Concomitant]
     Active Substance: MEDROXYPROGESTERONE
     Dates: start: 20131101
  5. STIMATE [Suspect]
     Active Substance: DESMOPRESSIN ACETATE
     Indication: DIABETES INSIPIDUS
     Route: 045
  6. THYRADIN-S [Concomitant]
     Active Substance: LEVOTHYROXINE
     Route: 048
     Dates: start: 20130812
  7. MINIRIN MELT [Suspect]
     Active Substance: DESMOPRESSIN ACETATE
     Indication: DIABETES INSIPIDUS
     Dates: start: 20130812
  8. PREMARIN [Concomitant]
     Active Substance: ESTROGENS, CONJUGATED
     Route: 048
     Dates: start: 20130812

REACTIONS (2)
  - Pituitary tumour [Recovered/Resolved]
  - Drug ineffective for unapproved indication [Unknown]

NARRATIVE: CASE EVENT DATE: 20140604
